FAERS Safety Report 4847046-7 (Version None)
Quarter: 2005Q4

REPORT INFORMATION
  Report Type: 
  Country: None (occurrence: None)
  Receive Date: 20051205
  Receipt Date: 20051121
  Transmission Date: 20060501
  Serious: Yes (Other)
  Sender: FDA-Public Use
  Company Number: 8013419

PATIENT
  Age: 55 Year
  Sex: Female
  Weight: 56.5 kg

DRUGS (2)
  1. KEPPRA [Suspect]
     Indication: EPILEPSY
     Dosage: 1500 MG 2/D PO
     Route: 048
     Dates: start: 20050201
  2. HUMALOG [Concomitant]

REACTIONS (2)
  - GRAND MAL CONVULSION [None]
  - LOSS OF CONSCIOUSNESS [None]
